FAERS Safety Report 5842504-0 (Version None)
Quarter: 2008Q3

REPORT INFORMATION
  Report Type: 
  Country: None (occurrence: None)
  Receive Date: 20080812
  Receipt Date: 20080731
  Transmission Date: 20090109
  Serious: Yes (Hospitalization)
  Sender: FDA-Public Use
  Company Number: JP-PFIZER INC-2008055782

PATIENT
  Age: 63 Year
  Sex: Male

DRUGS (4)
  1. DIFLUCAN [Suspect]
     Indication: SYSTEMIC MYCOSIS
     Dosage: DAILY DOSE:200MG
     Route: 042
     Dates: start: 20080620, end: 20080625
  2. MEROPEN [Suspect]
     Indication: INFECTION
     Dosage: DAILY DOSE:1GRAM
     Route: 042
     Dates: start: 20080604, end: 20080617
  3. COTRIM [Suspect]
     Indication: INFECTION
     Dosage: DAILY DOSE:1600MG
     Route: 048
     Dates: start: 20080617, end: 20080623
  4. DRUG, UNSPECIFIED [Concomitant]

REACTIONS (1)
  - RENAL FAILURE ACUTE [None]
